FAERS Safety Report 24084670 (Version 2)
Quarter: 2024Q3

REPORT INFORMATION
  Report Type: Spontaneous
  Country: US (occurrence: US)
  Receive Date: 20240712
  Receipt Date: 20240904
  Transmission Date: 20241017
  Serious: Yes (Other)
  Sender: PFIZER
  Company Number: US-PFIZER INC-202400209965

PATIENT
  Age: 36 Year
  Sex: Female

DRUGS (3)
  1. ADCETRIS [Suspect]
     Active Substance: BRENTUXIMAB VEDOTIN
     Dosage: 125 MG (THREE 50 MG VIALS) EVERY 21 DAYS BY INFUSION
     Dates: start: 20231113
  2. ADCETRIS [Suspect]
     Active Substance: BRENTUXIMAB VEDOTIN
     Dosage: 125 MG (THREE 50 MG VIALS) EVERY 21 DAYS BY INFUSION
     Dates: start: 20231204
  3. ADCETRIS [Suspect]
     Active Substance: BRENTUXIMAB VEDOTIN
     Dosage: 125 MG (THREE 50 MG VIALS) EVERY 21 DAYS BY INFUSION
     Dates: start: 20231226, end: 20240116

REACTIONS (2)
  - Neuropathy peripheral [Unknown]
  - Neoplasm progression [Unknown]

NARRATIVE: CASE EVENT DATE: 20240116
